FAERS Safety Report 4323995-3 (Version None)
Quarter: 2004Q1

REPORT INFORMATION
  Report Type: 
  Country: None (occurrence: None)
  Receive Date: 20040325
  Receipt Date: 20040311
  Transmission Date: 20041129
  Serious: Yes (Death)
  Sender: FDA-Public Use
  Company Number: 20040300235

PATIENT
  Age: 53 Year
  Sex: Male
  Weight: 90.7194 kg

DRUGS (3)
  1. MEPERIDINE (BAXTER) [Suspect]
     Indication: ANALGESIC EFFECT
     Dosage: 75 MG DAILY IV
     Route: 042
  2. VICODIN (ACETAMINOPHEN 500 MG/HYDROCODONE BITARTRATE 5 MG) [Concomitant]
  3. PERIDOL (HALOPERIDOL) [Concomitant]

REACTIONS (4)
  - COMA [None]
  - RENAL CELL CARCINOMA STAGE UNSPECIFIED [None]
  - RESPIRATORY ARREST [None]
  - SLEEP APNOEA SYNDROME [None]
